FAERS Safety Report 21206536 (Version 1)
Quarter: 2022Q3

REPORT INFORMATION
  Report Type: Spontaneous
  Country: MK (occurrence: MK)
  Receive Date: 20220812
  Receipt Date: 20220812
  Transmission Date: 20221027
  Serious: Yes (Death, Other)
  Sender: FDA-Public Use
  Company Number: MK-SUN PHARMACEUTICAL INDUSTRIES LTD-2022RR-348589

PATIENT
  Age: 79 Year
  Sex: Female

DRUGS (4)
  1. DOXORUBICIN [Suspect]
     Active Substance: DOXORUBICIN
     Indication: Enteropathy-associated T-cell lymphoma
     Dosage: 60 MILLIGRAM
     Route: 065
  2. PREDNISOLONE [Suspect]
     Active Substance: PREDNISOLONE
     Indication: Enteropathy-associated T-cell lymphoma
     Dosage: 100 MILLIGRAM, IN 5 DAYS
  3. ONCOVIN [Suspect]
     Active Substance: VINCRISTINE SULFATE
     Indication: Enteropathy-associated T-cell lymphoma
     Dosage: 2 MILLIGRAM
     Route: 065
  4. CYCLOPHOSPHAMIDE [Suspect]
     Active Substance: CYCLOPHOSPHAMIDE
     Indication: Enteropathy-associated T-cell lymphoma
     Dosage: 800 MILLIGRAM
     Route: 065

REACTIONS (5)
  - Disease progression [Unknown]
  - Cardiopulmonary failure [Fatal]
  - Fistula [Unknown]
  - Renal failure [Unknown]
  - Multiple organ dysfunction syndrome [Unknown]
